FAERS Safety Report 7756314-0 (Version None)
Quarter: 2011Q3

REPORT INFORMATION
  Report Type: 
  Country: None (occurrence: None)
  Receive Date: 20110916
  Receipt Date: 20110909
  Transmission Date: 20111222
  Serious: Yes (Death, Hospitalization)
  Sender: FDA-Public Use
  Company Number: DE-BRISTOL-MYERS SQUIBB COMPANY-15975071

PATIENT
  Age: 78 Year
  Sex: Female

DRUGS (1)
  1. ABATACEPT [Suspect]
     Indication: RHEUMATOID ARTHRITIS
     Dosage: ALSO 500MG,LAST INFUSION ON
     Dates: start: 20080401, end: 20100901

REACTIONS (5)
  - PNEUMONIA [None]
  - ARTHRITIS BACTERIAL [None]
  - ENDOCARDITIS [None]
  - ARRHYTHMIA SUPRAVENTRICULAR [None]
  - STAPHYLOCOCCAL SEPSIS [None]
